FAERS Safety Report 5309703-8 (Version None)
Quarter: 2007Q2

REPORT INFORMATION
  Report Type: 
  Country: None (occurrence: None)
  Receive Date: 20070427
  Receipt Date: 20070419
  Transmission Date: 20071010
  Serious: Yes (Disabling, Other)
  Sender: FDA-Public Use
  Company Number: ES-AMGEN-UK211852

PATIENT
  Age: 51 Year
  Sex: Male

DRUGS (5)
  1. ARANESP [Suspect]
     Indication: RENAL TRANSPLANT
     Route: 058
     Dates: start: 20061101, end: 20070219
  2. SANDIMMUNE [Concomitant]
     Route: 048
     Dates: start: 19970101
  3. PREDNISONE TAB [Concomitant]
     Route: 048
     Dates: start: 19970101
  4. RANITIDINE [Concomitant]
     Route: 048
     Dates: start: 19970101
  5. ASPIRIN [Concomitant]
     Route: 048
     Dates: start: 20050101

REACTIONS (2)
  - ANAEMIA [None]
  - APLASIA PURE RED CELL [None]
